FAERS Safety Report 4614031-X (Version None)
Quarter: 2005Q1

REPORT INFORMATION
  Report Type: 
  Country: None (occurrence: None)
  Receive Date: 20050321
  Receipt Date: 20050317
  Transmission Date: 20050727
  Serious: Yes (Death)
  Sender: FDA-Public Use
  Company Number: JP-ROCHE-398982

PATIENT
  Age: 25 Year
  Sex: Male

DRUGS (3)
  1. HORIZON [Suspect]
     Indication: DRUG USE FOR UNKNOWN INDICATION
     Route: 030
     Dates: start: 20050101
  2. REPTILASE [Concomitant]
  3. UNSPECIFIED MEDICATION [Concomitant]

REACTIONS (1)
  - RESPIRATORY DEPRESSION [None]
